FAERS Safety Report 10334145 (Version 1)
Quarter: 2014Q3

REPORT INFORMATION
  Report Type: Spontaneous
  Country: US (occurrence: None)
  Receive Date: 20140721
  Receipt Date: 20140721
  Transmission Date: 20150326
  Serious: Yes (Life-Threatening, Hospitalization, Other)
  Sender: FDA-Public Use
  Company Number: None

PATIENT
  Age: 18 Year
  Sex: Female
  Weight: 61.24 kg

DRUGS (1)
  1. IMPLANON [Suspect]
     Active Substance: ETONOGESTREL
     Dates: start: 20100105, end: 20140617

REACTIONS (8)
  - Libido decreased [None]
  - Abdominal pain [None]
  - Death of relative [None]
  - Migraine [None]
  - Menorrhagia [None]
  - Mental disorder [None]
  - Emotional disorder [None]
  - Ovarian cyst [None]
